FAERS Safety Report 12636559 (Version 1)
Quarter: 2016Q3

REPORT INFORMATION
  Report Type: Report from Study
  Country: KR (occurrence: KR)
  Receive Date: 20160809
  Receipt Date: 20160809
  Transmission Date: 20161109
  Serious: Yes (Hospitalization)
  Sender: FDA-Public Use
  Company Number: KR-SUN PHARMACEUTICAL INDUSTRIES LTD-2016R1-121610

PATIENT
  Age: 36 Year
  Sex: Male

DRUGS (2)
  1. CHLORTHALIDONE. [Suspect]
     Active Substance: CHLORTHALIDONE
     Indication: PRODUCT USED FOR UNKNOWN INDICATION
     Route: 065
  2. TELMISARTAN. [Suspect]
     Active Substance: TELMISARTAN
     Indication: PRODUCT USED FOR UNKNOWN INDICATION
     Route: 065

REACTIONS (5)
  - Drug interaction [Unknown]
  - Vomiting [Recovering/Resolving]
  - Hypokalaemia [Unknown]
  - Electrocardiogram QT prolonged [Unknown]
  - Nausea [Recovering/Resolving]
